FAERS Safety Report 12884009 (Version 2)
Quarter: 2016Q4

REPORT INFORMATION
  Report Type: Spontaneous
  Country: US (occurrence: US)
  Receive Date: 20161026
  Receipt Date: 20161115
  Transmission Date: 20170207
  Serious: Yes (Hospitalization)
  Sender: FDA-Public Use
  Company Number: US-TAIHO ONCOLOGY INC-EU-2016-01452

PATIENT
  Age: 72 Year
  Sex: Female

DRUGS (18)
  1. NYSTATIN. [Concomitant]
     Active Substance: NYSTATIN
     Dosage: NI
  2. FLOVENT [Concomitant]
     Active Substance: FLUTICASONE PROPIONATE
     Dosage: NI
  3. DRONABINOL. [Concomitant]
     Active Substance: DRONABINOL
     Dosage: NI
  4. POTASSIUM CHLORIDE. [Concomitant]
     Active Substance: POTASSIUM CHLORIDE
     Dosage: NI
  5. ELIQUIS [Concomitant]
     Active Substance: APIXABAN
     Dosage: NI
  6. LORAZEPAM. [Concomitant]
     Active Substance: LORAZEPAM
     Dosage: NI
  7. LOPERAMIDE [Concomitant]
     Active Substance: LOPERAMIDE
     Dosage: NI
  8. PYRIDIUM [Concomitant]
     Active Substance: PHENAZOPYRIDINE
     Dosage: NI
  9. SIMVASTATIN. [Concomitant]
     Active Substance: SIMVASTATIN
     Dosage: NI
  10. NORCO [Concomitant]
     Active Substance: ACETAMINOPHEN\HYDROCODONE BITARTRATE
     Dosage: NI
  11. WELLBUTRIN [Concomitant]
     Active Substance: BUPROPION HYDROCHLORIDE
     Dosage: NI
  12. SALBUTAMOL [Concomitant]
     Active Substance: ALBUTEROL
     Dosage: NI
  13. PROCHLORPERAZINE. [Concomitant]
     Active Substance: PROCHLORPERAZINE
     Dosage: NI
  14. ZOFRAN [Concomitant]
     Active Substance: ONDANSETRON HYDROCHLORIDE
     Dosage: NI
  15. LONSURF [Suspect]
     Active Substance: TIPIRACIL HYDROCHLORIDE\TRIFLURIDINE
     Indication: COLON CANCER
     Dosage: 60MG AM 40MG PM
     Route: 048
     Dates: start: 20160430
  16. TRIAMTERENE. [Concomitant]
     Active Substance: TRIAMTERENE
     Dosage: NI
  17. OMEPRAZOLE. [Concomitant]
     Active Substance: OMEPRAZOLE
     Dosage: NI
  18. ACICLOVIR [Concomitant]
     Active Substance: ACYCLOVIR
     Dosage: NI

REACTIONS (4)
  - Vomiting [Unknown]
  - Malaise [Unknown]
  - Nausea [Unknown]
  - Small intestinal obstruction [Recovered/Resolved]

NARRATIVE: CASE EVENT DATE: 20160620
